FAERS Safety Report 23251801 (Version 1)
Quarter: 2023Q4

REPORT INFORMATION
  Report Type: Spontaneous
  Country: US (occurrence: None)
  Receive Date: 20231201
  Receipt Date: 20231201
  Transmission Date: 20240110
  Serious: Yes (Hospitalization)
  Sender: FDA-Public Use
  Company Number: None

PATIENT
  Age: 27 Month
  Sex: Male
  Weight: 13.5 kg

DRUGS (2)
  1. CALASPARGASE PEGOL-MKNL [Suspect]
     Active Substance: CALASPARGASE PEGOL-MKNL
     Indication: Acute lymphocytic leukaemia
     Dosage: OTHER FREQUENCY : ONCE;?
     Route: 042
     Dates: start: 20230511, end: 20230511
  2. VINCRISTINE [Concomitant]
     Active Substance: VINCRISTINE
     Dates: start: 20230510, end: 20230531

REACTIONS (1)
  - Hypertriglyceridaemia [None]

NARRATIVE: CASE EVENT DATE: 20230527
